FAERS Safety Report 6269905-3 (Version None)
Quarter: 2009Q3

REPORT INFORMATION
  Report Type: 
  Country: None (occurrence: None)
  Receive Date: 20090714
  Receipt Date: 20090629
  Transmission Date: 20100115
  Serious: Yes (Other)
  Sender: FDA-Public Use
  Company Number: 2009001732

PATIENT
  Age: 63 Year
  Sex: Male

DRUGS (4)
  1. ERLOTINIB            (ERLOTINIB) [Suspect]
     Dosage: (150 MG), ORAL
     Route: 048
     Dates: start: 20090528, end: 20090529
  2. ERLOTINIB            (ERLOTINIB) [Suspect]
     Dosage: (150 MG), ORAL
     Route: 048
     Dates: start: 20090608
  3. PREDNISONE TAB [Concomitant]
  4. PANTOPRAZOLE SODIUM [Concomitant]

REACTIONS (5)
  - DYSPNOEA [None]
  - HYPERSENSITIVITY [None]
  - INCREASED BRONCHIAL SECRETION [None]
  - INTERSTITIAL LUNG DISEASE [None]
  - RASH [None]
